FAERS Safety Report 4434956-8 (Version None)
Quarter: 2004Q3

REPORT INFORMATION
  Report Type: 
  Country: None (occurrence: None)
  Receive Date: 20040726
  Receipt Date: 20040511
  Transmission Date: 20050211
  Serious: No
  Sender: FDA-Public Use
  Company Number: USA040567204

PATIENT
  Age: 81 Year
  Sex: Female
  Weight: 52 kg

DRUGS (4)
  1. FORTEO [Suspect]
     Indication: OSTEOPOROSIS
     Dosage: 20 UG DAY
     Dates: start: 20040201
  2. EVISTA [Concomitant]
  3. LIPITOR [Concomitant]
  4. NEXIUM [Concomitant]

REACTIONS (2)
  - INFLAMMATION [None]
  - RASH [None]
